FAERS Safety Report 9093138 (Version 2)
Quarter: 2013Q4

REPORT INFORMATION
  Report Type: Spontaneous
  Country: US (occurrence: US)
  Receive Date: 20130201
  Receipt Date: 20131011
  Transmission Date: 20140711
  Serious: Yes (Other)
  Sender: FDA-Public Use
  Company Number: US-PFIZER INC-2013043457

PATIENT
  Sex: Female

DRUGS (5)
  1. LYRICA [Suspect]
     Indication: NEURALGIA
     Dosage: 50 MG, 2X/DAY
     Route: 048
     Dates: start: 200912
  2. LYRICA [Suspect]
     Indication: BURNING SENSATION
  3. CELEBREX [Suspect]
     Indication: ARTHRITIS
     Dosage: UNK
  4. CALCIUM [Concomitant]
     Dosage: UNK
  5. OMEPRAZOLE [Concomitant]
     Dosage: UNK

REACTIONS (2)
  - Surgery [Unknown]
  - Back disorder [Unknown]
